FAERS Safety Report 25654531 (Version 1)
Quarter: 2025Q3

REPORT INFORMATION
  Report Type: Spontaneous
  Country: US (occurrence: None)
  Receive Date: 20250806
  Receipt Date: 20250806
  Transmission Date: 20251020
  Serious: No
  Sender: FDA-CTU
  Company Number: None

PATIENT
  Sex: Male

DRUGS (3)
  1. PULMOZYME [Suspect]
     Active Substance: DORNASE ALFA
     Indication: Cystic fibrosis
     Dosage: 1 MG/ML TWICE A DAY RESPIRATHORY (INHALATION)
     Route: 055
     Dates: start: 20230727
  2. TRIKAFTA [Suspect]
     Active Substance: ELEXACAFTOR\IVACAFTOR\TEZACAFTOR
  3. CAYSTON [Suspect]
     Active Substance: AZTREONAM

REACTIONS (1)
  - Dizziness [None]
